FAERS Safety Report 9140341 (Version 1)
Quarter: 2013Q1

REPORT INFORMATION
  Report Type: Spontaneous
  Country: US (occurrence: None)
  Receive Date: 20130227
  Receipt Date: 20130227
  Transmission Date: 20140127
  Serious: Yes (Death)
  Sender: FDA-Public Use
  Company Number: SYM-2013-00139

PATIENT
  Age: 54 Year
  Sex: Male

DRUGS (5)
  1. DIAZEPAM (DIAZEPAM) (UNKNOWN) (DIAZEPAM) [Suspect]
     Dosage: INGESTION
  2. ALPRAZOLAM (ALPRAZOLAM) (ALPRAZOLAM) [Suspect]
  3. ACETAMINOPHEN/HYDROCODONE [Suspect]
  4. FLUOXETINE [Suspect]
  5. MORPHINE [Suspect]

REACTIONS (2)
  - Drug abuse [None]
  - Poisoning [None]
